FAERS Safety Report 6299010-1 (Version None)
Quarter: 2009Q3

REPORT INFORMATION
  Report Type: 
  Country: None (occurrence: None)
  Receive Date: 20090806
  Receipt Date: 20090723
  Transmission Date: 20100115
  Serious: Yes (Other)
  Sender: FDA-Public Use
  Company Number: PHHY2009MX11016

PATIENT
  Sex: Male

DRUGS (9)
  1. TEGRETOL [Suspect]
     Indication: TRIGEMINAL NEURALGIA
     Dosage: 200 MG, (6 TABLETS DAILY)
     Dates: start: 20010101, end: 20081201
  2. TEGRETOL [Suspect]
     Dosage: 03 TABLETS PER DAY
     Route: 048
     Dates: start: 20090727
  3. PLAVIX [Concomitant]
  4. LIPITOR [Concomitant]
  5. LYRICA [Concomitant]
     Dosage: UNK
  6. LYRICA [Concomitant]
     Dosage: UNK
     Dates: start: 20090101
  7. METOPROLOL SUCCINATE [Concomitant]
  8. ISOSORBIDE [Concomitant]
  9. ACETYLSALICYLIC ACID [Concomitant]

REACTIONS (8)
  - EYE PAIN [None]
  - FACIAL PAIN [None]
  - PAIN [None]
  - PAIN IN JAW [None]
  - SPEECH DISORDER [None]
  - THERAPY CESSATION [None]
  - TOOTHACHE [None]
  - TREATMENT NONCOMPLIANCE [None]
